FAERS Safety Report 7650531-6 (Version None)
Quarter: 2011Q3

REPORT INFORMATION
  Report Type: 
  Country: None (occurrence: None)
  Receive Date: 20110802
  Receipt Date: 20110726
  Transmission Date: 20111222
  Serious: Yes (Death)
  Sender: FDA-Public Use
  Company Number: LV-GLAXOSMITHKLINE-B0734848A

PATIENT
  Sex: Male
  Weight: 90 kg

DRUGS (9)
  1. ASPIRIN [Concomitant]
     Indication: THROMBOSIS PROPHYLAXIS
     Dosage: 100MG PER DAY
     Route: 048
  2. ARIXTRA [Suspect]
     Indication: CARDIAC FAILURE
     Dosage: 2.5MG PER DAY
     Route: 058
     Dates: start: 20110705, end: 20110711
  3. GLUCONORM [Concomitant]
     Indication: DIABETES MELLITUS
     Dosage: 2TAB PER DAY
     Route: 048
  4. BISOPROLOL FUMARATE [Concomitant]
     Indication: CARDIAC FAILURE
     Dosage: 5MG PER DAY
     Route: 048
  5. MICARDIS [Concomitant]
     Indication: HYPERTENSION
     Route: 048
  6. WARFARIN SODIUM [Concomitant]
     Indication: THROMBOSIS PROPHYLAXIS
     Dosage: 1.5MG PER DAY
     Route: 042
  7. PHYSIOTENS [Concomitant]
     Indication: HYPERTENSION
     Route: 048
  8. SPIRIX [Concomitant]
     Indication: CARDIAC FAILURE
     Dosage: 25MG PER DAY
     Route: 048
  9. TORSEMIDE [Concomitant]
     Dosage: 20MG ALTERNATE DAYS
     Route: 048

REACTIONS (5)
  - BRAIN OEDEMA [None]
  - INTRACRANIAL HAEMATOMA [None]
  - MOVEMENT DISORDER [None]
  - CIRCULATORY COLLAPSE [None]
  - HEART RATE IRREGULAR [None]
